FAERS Safety Report 4839718-5 (Version None)
Quarter: 2005Q4

REPORT INFORMATION
  Report Type: 
  Country: None (occurrence: None)
  Receive Date: 20051129
  Receipt Date: 20050706
  Transmission Date: 20060501
  Serious: No
  Sender: FDA-Public Use
  Company Number: US-GLAXOSMITHKLINE-A0565197A

PATIENT
  Age: 61 Year
  Sex: Female

DRUGS (3)
  1. WELLBUTRIN SR [Suspect]
     Dosage: 150MG TWO TIMES PER WEEK
     Route: 048
  2. PREMARIN [Concomitant]
  3. PROZAC [Concomitant]

REACTIONS (6)
  - CHEST PAIN [None]
  - FEELING ABNORMAL [None]
  - HYPERHIDROSIS [None]
  - NAUSEA [None]
  - PARAESTHESIA [None]
  - SLEEP TALKING [None]
